FAERS Safety Report 4599607-0 (Version None)
Quarter: 2005Q1

REPORT INFORMATION
  Report Type: 
  Country: None (occurrence: None)
  Receive Date: 20050303
  Receipt Date: 20050214
  Transmission Date: 20050727
  Serious: Yes (Hospitalization, Other)
  Sender: FDA-Public Use
  Company Number: US_0502112134

PATIENT
  Age: 37 Year
  Sex: Female
  Weight: 64 kg

DRUGS (1)
  1. ZYPREXA [Suspect]
     Dates: start: 20010702

REACTIONS (4)
  - COR PULMONALE [None]
  - DIABETES MELLITUS [None]
  - HERNIA [None]
  - HYSTERECTOMY [None]
